FAERS Safety Report 6167020-0 (Version None)
Quarter: 2009Q2

REPORT INFORMATION
  Report Type: 
  Country: None (occurrence: None)
  Receive Date: 20090424
  Receipt Date: 20090416
  Transmission Date: 20091009
  Serious: Yes (Hospitalization)
  Sender: FDA-Public Use
  Company Number: CA-PFIZER INC-2009199979

PATIENT

DRUGS (8)
  1. LIPITOR [Suspect]
     Dosage: UNK
  2. METFORMIN HCL [Suspect]
     Dosage: 500 MG, 1X/DAY
  3. GLUCOBAY [Suspect]
     Dosage: 100 MG, 1X/DAY
  4. ACTOS [Suspect]
     Dosage: UNK
  5. AVAPRO [Suspect]
     Dosage: 75 MG, 1X/DAY
  6. DIAMICRON [Suspect]
     Dosage: 30 MG, 1X/DAY
  7. ACETYLSALICYLIC ACID [Suspect]
     Dosage: UNK
  8. LANTUS [Suspect]
     Dosage: UNK

REACTIONS (1)
  - BREAST CANCER [None]
